FAERS Safety Report 4588563-7 (Version None)
Quarter: 2005Q1

REPORT INFORMATION
  Report Type: 
  Country: None (occurrence: None)
  Receive Date: 20050215
  Receipt Date: 20050215
  Transmission Date: 20050727
  Serious: Yes (Hospitalization)
  Sender: FDA-Public Use
  Company Number: None

PATIENT
  Age: 40 Year
  Sex: Female
  Weight: 76.2043 kg

DRUGS (3)
  1. CYCLOPHOSPHAMIDE [Suspect]
     Indication: CHEMOTHERAPY
     Dosage: 3.5GMS  IV  X1
     Route: 042
     Dates: start: 20050207
  2. MESNA [Suspect]
     Indication: PROPHYLAXIS
     Dosage: 700MG IV TID
     Route: 042
     Dates: start: 20050207
  3. IV HYDRATION [Concomitant]

REACTIONS (4)
  - DYSPNOEA [None]
  - FOOD INTOLERANCE [None]
  - NAUSEA [None]
  - WHEEZING [None]
